FAERS Safety Report 14829354 (Version 4)
Quarter: 2019Q4

REPORT INFORMATION
  Report Type: Report from Study
  Country: FI (occurrence: FI)
  Receive Date: 20180430
  Receipt Date: 20191106
  Transmission Date: 20200122
  Serious: Yes (Other)
  Sender: FDA-Public Use
  Company Number: FI-MYLANLABS-2018M1028988

PATIENT
  Age: 34 Year
  Sex: Female

DRUGS (12)
  1. LEPONEX [Suspect]
     Active Substance: CLOZAPINE
     Indication: SCHIZOPHRENIA
     Dosage: UNK
     Dates: start: 2002
  2. ARIPIPRAZOLE. [Concomitant]
     Active Substance: ARIPIPRAZOLE
     Indication: PRODUCT USED FOR UNKNOWN INDICATION
     Dosage: UNK
     Dates: start: 2006
  3. CERAZETTE [Concomitant]
     Indication: PRODUCT USED FOR UNKNOWN INDICATION
     Dosage: 75 ?G, QD
     Dates: start: 20180417
  4. YASMIN [Suspect]
     Active Substance: DROSPIRENONE\ETHINYL ESTRADIOL
     Indication: PRODUCT USED FOR UNKNOWN INDICATION
     Dosage: UNK
     Route: 048
     Dates: start: 20180404, end: 20180404
  5. PANADOL FORTE                      /00020001/ [Concomitant]
     Active Substance: ACETAMINOPHEN
     Indication: PRODUCT USED FOR UNKNOWN INDICATION
     Dosage: 1 G, PRN
     Dates: start: 20171215
  6. LEPONEX [Suspect]
     Active Substance: CLOZAPINE
     Dosage: 350 MG, QD
     Dates: start: 2002, end: 2006
  7. LEPONEX [Suspect]
     Active Substance: CLOZAPINE
     Dosage: 250 MG, QD
     Dates: start: 2016, end: 201709
  8. LEPONEX [Suspect]
     Active Substance: CLOZAPINE
     Dosage: UNK
     Dates: start: 20170911
  9. LEPONEX [Suspect]
     Active Substance: CLOZAPINE
     Dosage: 300 MG, QD
     Dates: start: 2006, end: 2016
  10. LEPONEX [Suspect]
     Active Substance: CLOZAPINE
     Dosage: 200 MG, QD
     Dates: start: 201709
  11. YASMIN [Suspect]
     Active Substance: DROSPIRENONE\ETHINYL ESTRADIOL
     Dosage: UNK UNK, QD
     Route: 048
     Dates: start: 20190404, end: 20190404
  12. OPAMOX [Concomitant]
     Active Substance: OXAZEPAM
     Indication: PRODUCT USED FOR UNKNOWN INDICATION
     Dosage: 15 MG, PRN

REACTIONS (18)
  - Asthenia [Unknown]
  - Infection [Not Recovered/Not Resolved]
  - Antipsychotic drug level increased [Unknown]
  - Hallucination, auditory [Unknown]
  - Ill-defined disorder [Unknown]
  - Compulsive cheek biting [Unknown]
  - Therapy partial responder [Unknown]
  - Hallucination, visual [Unknown]
  - Groin abscess [Not Recovered/Not Resolved]
  - Psychotic disorder [Not Recovered/Not Resolved]
  - Pyelitis [Recovered/Resolved]
  - Pyrexia [Not Recovered/Not Resolved]
  - Arthritis [Recovering/Resolving]
  - Inflammation [Not Recovered/Not Resolved]
  - C-reactive protein increased [Not Recovered/Not Resolved]
  - White blood cell count increased [Recovered/Resolved]
  - Deep vein thrombosis [Recovering/Resolving]
  - Tendonitis [Recovering/Resolving]

NARRATIVE: CASE EVENT DATE: 2006
